FAERS Safety Report 15781051 (Version 1)
Quarter: 2018Q4

REPORT INFORMATION
  Report Type: Spontaneous
  Country: US (occurrence: US)
  Receive Date: 20181227
  Receipt Date: 20181227
  Transmission Date: 20190205
  Serious: No
  Sender: FDA-Public Use
  Company Number: None

PATIENT

DRUGS (2)
  1. HYDROXYZINE 25MG TABS [Suspect]
     Active Substance: HYDROXYZINE HYDROCHLORIDE
  2. HYDROCHLOROTHIAZIDE 25MG TABS [Suspect]
     Active Substance: HYDROCHLOROTHIAZIDE

REACTIONS (5)
  - Product name confusion [None]
  - Urticaria [None]
  - Product appearance confusion [None]
  - Product dispensing error [None]
  - Wrong product administered [None]

NARRATIVE: CASE EVENT DATE: 2018
